FAERS Safety Report 5573350-3 (Version None)
Quarter: 2007Q4

REPORT INFORMATION
  Report Type: 
  Country: None (occurrence: None)
  Receive Date: 20071220
  Receipt Date: 20071220
  Transmission Date: 20080405
  Serious: Yes (Hospitalization)
  Sender: FDA-Public Use
  Company Number: None

PATIENT
  Age: 72 Year
  Sex: Female

DRUGS (9)
  1. ETODOLAC [Suspect]
     Indication: MUSCULOSKELETAL PAIN
     Dosage: 400MG  BID  PO  (DURATION: CHRONIC)
     Route: 048
  2. OTHER OTC ANTI INFLAMMATORIES [Suspect]
     Indication: MUSCULOSKELETAL PAIN
     Dosage: (DURATION: CHRONIC)
  3. ALBUTEROL [Concomitant]
  4. GLYBURIDE [Concomitant]
  5. LIPITOR [Concomitant]
  6. INDAPAMIDE [Concomitant]
  7. LASIX [Concomitant]
  8. METOPROLOL TARTRATE [Concomitant]
  9. POTASSIUM CHLORIDE [Concomitant]

REACTIONS (2)
  - CARDIAC FAILURE CONGESTIVE [None]
  - CONDITION AGGRAVATED [None]
